FAERS Safety Report 9457955 (Version 2)
Quarter: 2013Q3

REPORT INFORMATION
  Report Type: Spontaneous
  Country: US (occurrence: US)
  Receive Date: 20130814
  Receipt Date: 20130820
  Transmission Date: 20140515
  Serious: No
  Sender: FDA-Public Use
  Company Number: US-TEVA-426364USA

PATIENT
  Age: 29 Year
  Sex: Female
  Weight: 52.21 kg

DRUGS (5)
  1. PLAN B ONE-STEP [Suspect]
     Indication: POST COITAL CONTRACEPTION
     Dosage: 1.5 MILLIGRAM DAILY;
     Route: 048
     Dates: start: 20130812, end: 20130812
  2. CLONOPIN [Concomitant]
     Indication: ATTENTION DEFICIT/HYPERACTIVITY DISORDER
  3. NORCO 5-325 [Concomitant]
  4. FIORICET [Concomitant]
     Indication: MIGRAINE
  5. ALBUTEROL INHALER [Concomitant]
     Indication: ASTHMA

REACTIONS (8)
  - Vulvovaginal pain [Recovered/Resolved]
  - Diarrhoea [Recovered/Resolved]
  - Abdominal pain lower [Recovered/Resolved]
  - Nausea [Recovered/Resolved]
  - Dizziness [Recovered/Resolved]
  - Fatigue [Recovered/Resolved]
  - Menstruation irregular [Recovered/Resolved]
  - Menstruation irregular [Not Recovered/Not Resolved]
